FAERS Safety Report 9857607 (Version 2)
Quarter: 2014Q1

REPORT INFORMATION
  Report Type: Report from Study
  Country: CA (occurrence: CA)
  Receive Date: 20140131
  Receipt Date: 20140204
  Transmission Date: 20141002
  Serious: Yes (Hospitalization, Other)
  Sender: FDA-Public Use
  Company Number: CA-ROCHE-1342074

PATIENT
  Age: 59 Year
  Sex: Female

DRUGS (13)
  1. OMALIZUMAB [Suspect]
     Indication: ASTHMA
     Route: 065
     Dates: start: 20130610
  2. OMALIZUMAB [Suspect]
     Route: 065
     Dates: start: 20140107
  3. OMALIZUMAB [Suspect]
     Route: 065
     Dates: start: 20140113
  4. OMALIZUMAB [Suspect]
     Route: 058
     Dates: start: 20140124
  5. VENTOLIN HFA [Concomitant]
  6. CITALOPRAM HYDROBROMIDE [Concomitant]
     Route: 065
  7. DICETEL [Concomitant]
     Route: 065
  8. LOSARTAN [Concomitant]
     Route: 065
  9. ELTROXIN [Concomitant]
     Route: 065
  10. CO ATORVASTATIN [Concomitant]
     Route: 065
  11. PANTOPRAZOLE [Concomitant]
     Route: 065
  12. APO-HYDRO [Concomitant]
     Route: 065
  13. MONTELUKAST [Concomitant]
     Route: 065

REACTIONS (2)
  - Large intestinal obstruction [Recovered/Resolved]
  - Asthma [Recovered/Resolved]
